FAERS Safety Report 11412837 (Version 1)
Quarter: 2015Q3

REPORT INFORMATION
  Report Type: Spontaneous
  Country: US (occurrence: US)
  Receive Date: 20150821
  Receipt Date: 20150821
  Transmission Date: 20151125
  Serious: No
  Sender: FDA-Public Use
  Company Number: US-ELI_LILLY_AND_COMPANY-US201107007592

PATIENT
  Age: 31 Year
  Sex: Male

DRUGS (3)
  1. HUMULIN N [Suspect]
     Active Substance: INSULIN HUMAN
     Indication: TYPE 1 DIABETES MELLITUS
     Dosage: 15 U, EACH MORNING
  2. HUMULIN N [Suspect]
     Active Substance: INSULIN HUMAN
     Dosage: 10 U, EACH EVENING
  3. HUMULIN N [Suspect]
     Active Substance: INSULIN HUMAN
     Dosage: UNK UNK, PRN

REACTIONS (5)
  - Pollakiuria [Unknown]
  - Blood glucose increased [Unknown]
  - Insomnia [Unknown]
  - Tongue dry [Unknown]
  - Polydipsia [Unknown]

NARRATIVE: CASE EVENT DATE: 20110724
